FAERS Safety Report 18347208 (Version 2)
Quarter: 2020Q4

REPORT INFORMATION
  Report Type: Spontaneous
  Country: DE (occurrence: DE)
  Receive Date: 20201005
  Receipt Date: 20201225
  Transmission Date: 20210114
  Serious: Yes (Hospitalization, Other)
  Sender: FDA-Public Use
  Company Number: DE-ROCHE-2676161

PATIENT
  Sex: Female
  Weight: 75 kg

DRUGS (8)
  1. ROACTEMRA [Suspect]
     Active Substance: TOCILIZUMAB
     Indication: OLIGOARTHRITIS
     Route: 042
     Dates: start: 20200703, end: 20200703
  2. ROACTEMRA [Suspect]
     Active Substance: TOCILIZUMAB
     Indication: OLIGOARTHRITIS
  3. ROACTEMRA [Suspect]
     Active Substance: TOCILIZUMAB
     Indication: GIANT CELL ARTERITIS
  4. PREDNISOLONE. [Concomitant]
     Active Substance: PREDNISOLONE
  5. BUDESONIDE. [Concomitant]
     Active Substance: BUDESONIDE
  6. ROACTEMRA [Suspect]
     Active Substance: TOCILIZUMAB
     Indication: GIANT CELL ARTERITIS
     Route: 058
     Dates: start: 201909, end: 202001
  7. PANTOPRAZOLE [Concomitant]
     Active Substance: PANTOPRAZOLE
  8. ATORVASTATIN [Concomitant]
     Active Substance: ATORVASTATIN

REACTIONS (4)
  - Drug intolerance [Unknown]
  - Deep vein thrombosis [Recovered/Resolved with Sequelae]
  - Dyspnoea [Not Recovered/Not Resolved]
  - Pulmonary embolism [Recovered/Resolved with Sequelae]

NARRATIVE: CASE EVENT DATE: 202004
